FAERS Safety Report 18703539 (Version 2)
Quarter: 2021Q1

REPORT INFORMATION
  Report Type: Report from Study
  Country: US (occurrence: US)
  Receive Date: 20210105
  Receipt Date: 20210205
  Transmission Date: 20210419
  Serious: Yes (Hospitalization)
  Sender: FDA-Public Use
  Company Number: US-EISAI MEDICAL RESEARCH-EC-2020-084862

PATIENT
  Age: 38 Year
  Sex: Female
  Weight: 88.5 kg

DRUGS (9)
  1. POTASSIUM 595 (99) [Concomitant]
  2. ALBUTEROL SULFATE. [Concomitant]
     Active Substance: ALBUTEROL SULFATE
  3. KEYTRUDA [Concomitant]
     Active Substance: PEMBROLIZUMAB
     Route: 041
  4. LENVIMA [Suspect]
     Active Substance: LENVATINIB
     Indication: UTERINE CANCER
  5. LASIX [Concomitant]
     Active Substance: FUROSEMIDE
  6. LENVIMA [Suspect]
     Active Substance: LENVATINIB
     Indication: ENDOMETRIAL CANCER
     Route: 048
     Dates: start: 20201208
  7. IRON [Concomitant]
     Active Substance: IRON
  8. SPIRONOLACTONE. [Concomitant]
     Active Substance: SPIRONOLACTONE
  9. NORVASC [Concomitant]
     Active Substance: AMLODIPINE BESYLATE

REACTIONS (5)
  - Device occlusion [Recovering/Resolving]
  - Heart rate decreased [Unknown]
  - Pericardial effusion [Recovering/Resolving]
  - Blood pressure increased [Recovering/Resolving]
  - Intra-abdominal fluid collection [Recovering/Resolving]

NARRATIVE: CASE EVENT DATE: 202012
